FAERS Safety Report 20029624 (Version 1)
Quarter: 2021Q4

REPORT INFORMATION
  Report Type: Spontaneous
  Country: US (occurrence: US)
  Receive Date: 20211103
  Receipt Date: 20211103
  Transmission Date: 20220303
  Serious: No
  Sender: FDA-Public Use
  Company Number: US-UPSHER-SMITH LABORATORIES, LLC-2021USL00645

PATIENT
  Sex: Male
  Weight: 87.302 kg

DRUGS (13)
  1. JANTOVEN [Suspect]
     Active Substance: WARFARIN SODIUM
     Indication: Aortic valve replacement
     Dosage: UNK
     Dates: start: 2020, end: 2021
  2. JANTOVEN [Suspect]
     Active Substance: WARFARIN SODIUM
     Dosage: DOSE ADJUSTMENTS
     Dates: start: 2021, end: 2021
  3. JANTOVEN [Suspect]
     Active Substance: WARFARIN SODIUM
     Dosage: 7.5 MG, 3X/WEEK ON MONDAY, WEDNESDAY AND FRIDAY; 1X/DAY IN THE EVENING
     Dates: start: 2021
  4. JANTOVEN [Suspect]
     Active Substance: WARFARIN SODIUM
     Dosage: 10 MG, 4X/WEEK ON TUESDAY, THURSDAY, SATURDAY AND SUNDAY; 1X/DAY IN THE EVENING
     Dates: start: 2021
  5. WARFARIN SODIUM [Suspect]
     Active Substance: WARFARIN SODIUM
     Indication: Aortic valve replacement
  6. FISH OIL [Concomitant]
     Active Substance: FISH OIL
  7. MULTIVITAMIN FOR MEN OVER 50 [Concomitant]
  8. ASPIRIN [Concomitant]
     Active Substance: ASPIRIN
     Dosage: 81 MG
  9. VITAMIN D [Concomitant]
     Active Substance: VITAMIN D NOS
  10. TAMSULOSIN [Concomitant]
     Active Substance: TAMSULOSIN
  11. CRESTOR [Concomitant]
     Active Substance: ROSUVASTATIN CALCIUM
     Dosage: 20 MG
  12. LOSARTAN [Concomitant]
     Active Substance: LOSARTAN
     Dosage: 25 MG
  13. BYSTOLIC [Concomitant]
     Active Substance: NEBIVOLOL HYDROCHLORIDE
     Dosage: 2.5 MG, 1X/DAY IN THE AM

REACTIONS (1)
  - International normalised ratio fluctuation [Not Recovered/Not Resolved]
